FAERS Safety Report 7203218-8 (Version None)
Quarter: 2010Q4

REPORT INFORMATION
  Report Type: 
  Country: None (occurrence: None)
  Receive Date: 20101230
  Receipt Date: 20101221
  Transmission Date: 20110411
  Serious: Yes (Hospitalization)
  Sender: FDA-Public Use
  Company Number: US-BIOGENIDEC-2010BI043891

PATIENT
  Age: 60 Year
  Sex: Female

DRUGS (4)
  1. AVONEX [Suspect]
     Indication: MULTIPLE SCLEROSIS
     Route: 030
     Dates: start: 20080401
  2. AVONEX [Suspect]
     Route: 030
  3. BLOOD PRESSURE MEDICATION [Concomitant]
     Dates: end: 20101115
  4. BLOOD PRESSURE MEDICATION [Concomitant]
     Dates: start: 20101115

REACTIONS (1)
  - SYNCOPE [None]
